FAERS Safety Report 20802557 (Version 1)
Quarter: 2022Q2

REPORT INFORMATION
  Report Type: Spontaneous
  Country: US (occurrence: None)
  Receive Date: 20220509
  Receipt Date: 20220509
  Transmission Date: 20220720
  Serious: Yes (unspecified)
  Sender: FDA-Public Use
  Company Number: None

PATIENT
  Age: 41 Year
  Sex: Female
  Weight: 67.5 kg

DRUGS (1)
  1. HYDROXYZINE [Suspect]
     Active Substance: HYDROXYZINE HYDROCHLORIDE
     Indication: Insomnia
     Dosage: OTHER QUANTITY : 1 CAPSULE(S);?FREQUENCY : AT BEDTIME;?
     Route: 048
     Dates: start: 20220506, end: 20220506

REACTIONS (12)
  - Tremor [None]
  - Mydriasis [None]
  - Anxiety [None]
  - Dry mouth [None]
  - Diarrhoea [None]
  - Palpitations [None]
  - Mental impairment [None]
  - Insomnia [None]
  - Hyperhidrosis [None]
  - Nausea [None]
  - Decreased appetite [None]
  - Impaired work ability [None]

NARRATIVE: CASE EVENT DATE: 20220506
